FAERS Safety Report 23299682 (Version 2)
Quarter: 2023Q4

REPORT INFORMATION
  Report Type: Spontaneous
  Country: CN (occurrence: CN)
  Receive Date: 20231215
  Receipt Date: 20231219
  Transmission Date: 20240110
  Serious: Yes (Death, Hospitalization, Other)
  Sender: FDA-Public Use
  Company Number: CN-BAYER-2023A176894

PATIENT
  Age: 80 Year
  Sex: Female
  Weight: 50 kg

DRUGS (1)
  1. RIVAROXABAN [Suspect]
     Active Substance: RIVAROXABAN
     Indication: Hip arthroplasty
     Dosage: 10 MG, QD
     Route: 048
     Dates: start: 20231117, end: 20231123

REACTIONS (21)
  - Cardiac arrest [Fatal]
  - Gastrointestinal haemorrhage [Recovering/Resolving]
  - Coagulopathy [Recovering/Resolving]
  - Productive cough [Unknown]
  - Blood loss anaemia [Recovering/Resolving]
  - Pancytopenia [Unknown]
  - Renal injury [Unknown]
  - Haemorrhage subcutaneous [Recovering/Resolving]
  - Oedema peripheral [Unknown]
  - Respiratory rate increased [Unknown]
  - Blood pressure diastolic decreased [Unknown]
  - Depressed mood [Unknown]
  - Ocular icterus [Unknown]
  - Barrel chest [Unknown]
  - Urine output decreased [Unknown]
  - Palpitations [Unknown]
  - Chest discomfort [Unknown]
  - Dizziness [Unknown]
  - Constipation [Unknown]
  - Infection [Unknown]
  - Hypovolaemia [Unknown]

NARRATIVE: CASE EVENT DATE: 20231101
